FAERS Safety Report 5233457-7 (Version None)
Quarter: 2007Q1

REPORT INFORMATION
  Report Type: 
  Country: None (occurrence: None)
  Receive Date: 20070208
  Receipt Date: 20070130
  Transmission Date: 20070707
  Serious: Yes (Hospitalization)
  Sender: FDA-Public Use
  Company Number: US-SANOFI-SYNTHELABO-F03200700018

PATIENT
  Age: 71 Year
  Sex: Female
  Weight: 68 kg

DRUGS (20)
  1. CAPECITABINE [Suspect]
     Indication: COLON CANCER STAGE III
     Dosage: 2800 MG (1500 MG/M2) EVERY EIGHT HOURS FOR SIX DAYS
     Route: 048
     Dates: start: 20061207
  2. LEUCOVORIN CALCIUM [Suspect]
     Indication: COLON CANCER STAGE III
     Dosage: 38 MG (20 MG/M2) EVERY TWO WEEKS
     Route: 042
     Dates: start: 20061221, end: 20061221
  3. FLUOROURACIL [Suspect]
     Indication: COLON CANCER STAGE III
     Dosage: 760 MG (400 MG/M2) EVERY TWO WEEKS
     Route: 042
     Dates: start: 20061221, end: 20061221
  4. OXALIPLATIN [Suspect]
     Indication: COLON CANCER STAGE III
     Dosage: 190 MG (100 MG/M2) EVERY TWO WEEKS
     Route: 042
     Dates: start: 20061221, end: 20061221
  5. ASPIRIN [Concomitant]
     Dosage: UNK
     Route: 048
  6. METFORMIN HCL [Concomitant]
     Dosage: UNK
     Route: 048
  7. PROCHLORPERAZINE [Concomitant]
     Dosage: UNK
     Route: 065
  8. DOLASETRON [Concomitant]
     Dosage: UNK
     Route: 065
  9. MEGESTROL ACETATE [Concomitant]
     Dosage: UNK
     Route: 048
  10. FUROSEMIDE [Concomitant]
     Dosage: UNK
     Route: 065
  11. CYANOCOBALAMIN [Concomitant]
     Dosage: UNK
     Route: 065
  12. CARVEDILOL [Concomitant]
     Dosage: UNK
     Route: 048
  13. IPRATROPIUM BROMIDE [Concomitant]
     Dosage: UNK
     Route: 065
  14. ALBUTEROL [Concomitant]
     Dosage: UNK
     Route: 065
  15. FERROUS SULFATE TAB [Concomitant]
     Dosage: UNK
     Route: 065
  16. FOLIC ACID [Concomitant]
     Dosage: UNK
     Route: 065
  17. ASCORBIC ACID [Concomitant]
     Dosage: UNK
     Route: 065
  18. PIOGLITAZONE [Concomitant]
     Dosage: UNK
     Route: 048
  19. ATORVASTATIN CALCIUM [Concomitant]
     Dosage: UNK
     Route: 048
  20. RAMIPRIL [Concomitant]
     Dosage: UNK
     Route: 048

REACTIONS (7)
  - DEHYDRATION [None]
  - DIARRHOEA [None]
  - FISTULA [None]
  - HYPOTENSION [None]
  - NAUSEA [None]
  - RENAL FAILURE ACUTE [None]
  - VOMITING [None]
